FAERS Safety Report 21402588 (Version 1)
Quarter: 2022Q4

REPORT INFORMATION
  Report Type: Spontaneous
  Country: US (occurrence: US)
  Receive Date: 20221003
  Receipt Date: 20221003
  Transmission Date: 20230113
  Serious: Yes (Hospitalization)
  Sender: FDA-Public Use
  Company Number: US-MYLANLABS-2022M1110540

PATIENT
  Age: 35 Year
  Sex: Male

DRUGS (8)
  1. BUPROPION [Suspect]
     Active Substance: BUPROPION
     Indication: Sleep disorder
     Dosage: 150 MILLIGRAM, QD
     Route: 065
  2. ZOLPIDEM [Suspect]
     Active Substance: ZOLPIDEM TARTRATE
     Indication: Sleep disorder
     Dosage: 10 MILLIGRAM, PRN
     Route: 065
  3. CLOZAPINE [Suspect]
     Active Substance: CLOZAPINE
     Indication: Suicidal ideation
     Dosage: UNK
     Route: 065
  4. KETAMINE [Concomitant]
     Active Substance: KETAMINE
     Indication: Depression
     Dosage: DOSE NOT STATED
     Route: 042
  5. KETAMINE [Concomitant]
     Active Substance: KETAMINE
     Indication: Post-traumatic stress disorder
     Dosage: MONTHLY, KETAMINE USE QUICKLY ESCALATED TO MONTHLY IV INFUSIONS
     Route: 042
  6. KETAMINE [Concomitant]
     Active Substance: KETAMINE
     Indication: Depression
     Dosage: 4 DOSAGE FORM, QD
     Route: 048
  7. KETAMINE [Concomitant]
     Active Substance: KETAMINE
     Indication: Post-traumatic stress disorder
  8. LORAZEPAM [Concomitant]
     Active Substance: LORAZEPAM
     Indication: Anxiety
     Dosage: 1 MILLIGRAM, PRN ASNECESSARY
     Route: 065

REACTIONS (2)
  - Drug ineffective [Unknown]
  - Off label use [Unknown]
